FAERS Safety Report 9148901 (Version 2)
Quarter: 2013Q1

REPORT INFORMATION
  Report Type: Spontaneous
  Country: GR (occurrence: None)
  Receive Date: 20130304
  Receipt Date: 20130329
  Transmission Date: 20140127
  Serious: Yes (Death, Hospitalization)
  Sender: FDA-Public Use
  Company Number: GER/GRE/13/0028278

PATIENT
  Age: 70 Year
  Sex: Female

DRUGS (4)
  1. CLOPIDOGREL (CLOPIDOGREL) [Suspect]
     Indication: ISCHAEMIC STROKE
  2. CYCLOSPORIN [Suspect]
     Indication: PRODUCT USED FOR UNKNOWN INDICATION
  3. CORTICOSTEROIDS [Suspect]
     Indication: PRODUCT USED FOR UNKNOWN INDICATION
  4. HEPARIN (HEPARIN) [Suspect]
     Indication: PRODUCT USED FOR UNKNOWN INDICATION

REACTIONS (6)
  - Intra-abdominal haemorrhage [None]
  - Abdominal wall haematoma [None]
  - Nephrotic syndrome [None]
  - Blood pressure decreased [None]
  - Haemoglobin decreased [None]
  - Shock haemorrhagic [None]
